FAERS Safety Report 8298039-1 (Version None)
Quarter: 2012Q2

REPORT INFORMATION
  Report Type: 
  Country: None (occurrence: None)
  Receive Date: 20120419
  Receipt Date: 20120416
  Transmission Date: 20120825
  Serious: Yes (Hospitalization)
  Sender: FDA-Public Use
  Company Number: FR-SANOFI-AVENTIS-2012SA026488

PATIENT
  Age: 88 Year
  Sex: Female

DRUGS (11)
  1. AMITRIPTYLINE HCL [Suspect]
     Route: 048
     Dates: end: 20120112
  2. AMLODIPINE BESYLATE [Concomitant]
     Route: 065
  3. LORAZEPAM [Suspect]
     Route: 048
  4. NEBIVOLOL [Concomitant]
     Route: 065
  5. ZOLPIDEM TARTRATE [Suspect]
     Indication: INSOMNIA
     Route: 048
     Dates: end: 20120112
  6. MICARDIS HCT [Suspect]
     Route: 048
  7. ROSUVASTATIN CALCIUM [Concomitant]
     Route: 065
  8. ASPIRIN [Concomitant]
     Route: 065
  9. ATHYMIL [Suspect]
     Indication: DEPRESSION
     Route: 065
  10. TRIMETAZIDINE HYDROCHLORIDE [Suspect]
     Route: 048
  11. ACETAMINOPHEN [Concomitant]
     Route: 065

REACTIONS (11)
  - FALL [None]
  - ERYTHEMA [None]
  - ANAEMIA [None]
  - SKIN ULCER [None]
  - SINUS BRADYCARDIA [None]
  - CREPITATIONS [None]
  - RHABDOMYOLYSIS [None]
  - HALLUCINATION [None]
  - CONFUSIONAL STATE [None]
  - AMNESIA [None]
  - CEREBRAL ATROPHY [None]
